FAERS Safety Report 17758132 (Version 5)
Quarter: 2021Q1

REPORT INFORMATION
  Report Type: Spontaneous
  Country: US (occurrence: US)
  Receive Date: 20200507
  Receipt Date: 20210120
  Transmission Date: 20210419
  Serious: No
  Sender: FDA-Public Use
  Company Number: US-PFIZER INC-2020183339

PATIENT
  Age: 39 Year
  Sex: Male

DRUGS (5)
  1. SOMAVERT [Suspect]
     Active Substance: PEGVISOMANT
     Dosage: 20 MG, DAILY
     Route: 058
     Dates: start: 20200331
  2. SOMAVERT [Suspect]
     Active Substance: PEGVISOMANT
     Dosage: 10 MG, 1X/DAY
     Route: 058
  3. SOMAVERT [Suspect]
     Active Substance: PEGVISOMANT
     Dosage: 10 MG, DAILY
     Route: 058
     Dates: start: 20200331
  4. SOMAVERT [Suspect]
     Active Substance: PEGVISOMANT
     Indication: PITUITARY TUMOUR
     Dosage: 20 MG, DAILY
     Dates: start: 20200327
  5. SOMAVERT [Suspect]
     Active Substance: PEGVISOMANT
     Dosage: 40 MG, SINGLE (LOADING DOSE)
     Route: 058
     Dates: start: 20200331

REACTIONS (4)
  - Off label use [Unknown]
  - Nausea [Unknown]
  - Product dose omission issue [Unknown]
  - Diarrhoea [Unknown]

NARRATIVE: CASE EVENT DATE: 20200327
